FAERS Safety Report 5529232-6 (Version None)
Quarter: 2007Q4

REPORT INFORMATION
  Report Type: 
  Country: None (occurrence: None)
  Receive Date: 20071129
  Receipt Date: 20070726
  Transmission Date: 20080405
  Serious: No
  Sender: FDA-Public Use
  Company Number: A0666534A

PATIENT
  Sex: Female

DRUGS (3)
  1. BUPROPION HYDROCHLORIDE [Suspect]
     Indication: DRUG USE FOR UNKNOWN INDICATION
     Dosage: 100MG TWICE PER DAY
     Route: 048
  2. BUPROPION HYDROCHLORIDE [Suspect]
     Dosage: 100MG PER DAY
     Route: 048
  3. NO CONCURRENT MEDICATION [Concomitant]

REACTIONS (5)
  - ADVERSE EVENT [None]
  - BRUXISM [None]
  - HEADACHE [None]
  - INSOMNIA [None]
  - SENSITIVITY OF TEETH [None]
